FAERS Safety Report 7644073-1 (Version None)
Quarter: 2011Q3

REPORT INFORMATION
  Report Type: 
  Country: None (occurrence: None)
  Receive Date: 20110729
  Receipt Date: 20110719
  Transmission Date: 20111222
  Serious: Yes (Other)
  Sender: FDA-Public Use
  Company Number: CA-JNJFOC-20110709162

PATIENT
  Sex: Female
  Weight: 68.5 kg

DRUGS (9)
  1. PREDNISONE [Concomitant]
     Dates: start: 20100628
  2. OXYCONTIN [Concomitant]
     Dates: start: 20100628
  3. REMICADE [Suspect]
     Indication: RHEUMATOID ARTHRITIS
     Route: 042
  4. ASPIRIN [Concomitant]
     Dates: start: 20090723
  5. PREDNISONE [Concomitant]
     Dates: start: 20091110
  6. PREDNISONE [Concomitant]
     Dates: start: 20100503
  7. PREDNISONE [Concomitant]
     Dates: start: 20090918
  8. CRESTOR [Concomitant]
  9. PREDNISONE [Concomitant]
     Dates: start: 20090723

REACTIONS (1)
  - GOUT [None]
